APPROVED DRUG PRODUCT: TEMOZOLOMIDE
Active Ingredient: TEMOZOLOMIDE
Strength: 250MG
Dosage Form/Route: CAPSULE;ORAL
Application: A078879 | Product #004
Applicant: HERITAGE PHARMA LABS INC DBA AVET PHARMA LABS INC
Approved: Mar 1, 2010 | RLD: No | RS: No | Type: DISCN